FAERS Safety Report 4855682-7 (Version None)
Quarter: 2005Q4

REPORT INFORMATION
  Report Type: 
  Country: None (occurrence: None)
  Receive Date: 20051216
  Receipt Date: 20050419
  Transmission Date: 20060501
  Serious: Yes (Other)
  Sender: FDA-Public Use
  Company Number: PHNR2005AU00791

PATIENT
  Age: 78 Year
  Sex: Female

DRUGS (1)
  1. AREDIA [Suspect]
     Indication: OSTEITIS DEFORMANS
     Dosage: 90 MG  MONTHLY
     Route: 042

REACTIONS (11)
  - BONE DEBRIDEMENT [None]
  - BONE DISORDER [None]
  - DENTAL DISCOMFORT [None]
  - DENTAL TREATMENT [None]
  - GASTROSTOMY TUBE INSERTION [None]
  - HYPERBARIC OXYGEN THERAPY [None]
  - INFECTION [None]
  - OSTEONECROSIS [None]
  - PAIN IN JAW [None]
  - SOFT TISSUE INFECTION [None]
  - WEIGHT DECREASED [None]
